FAERS Safety Report 8830862 (Version 1)
Quarter: 2012Q4

REPORT INFORMATION
  Report Type: 
  Country: US (occurrence: US)
  Receive Date: 20121009
  Receipt Date: 20121009
  Transmission Date: 20130627
  Serious: No
  Sender: FDA-Public Use
  Company Number: US-PFIZER INC-2012248984

PATIENT
  Age: 44 Year
  Sex: Female
  Weight: 88.44 kg

DRUGS (2)
  1. NEURONTIN [Suspect]
     Indication: NEUROPATHY PERIPHERAL
     Dosage: UNK
     Dates: start: 2011, end: 2011
  2. NEURONTIN [Suspect]
     Indication: FIBROMYALGIA

REACTIONS (6)
  - Drug ineffective [Unknown]
  - Swelling [Recovered/Resolved]
  - Hypersensitivity [Recovered/Resolved]
  - Disturbance in attention [Recovered/Resolved]
  - Thinking abnormal [Recovered/Resolved]
  - Disorientation [Recovered/Resolved]
